FAERS Safety Report 8872577 (Version 1)
Quarter: 2012Q4

REPORT INFORMATION
  Report Type: Spontaneous
  Country: IN (occurrence: None)
  Receive Date: 20121024
  Receipt Date: 20121024
  Transmission Date: 20130627
  Serious: Yes (Other)
  Sender: FDA-Public Use
  Company Number: IN-1194720

PATIENT
  Age: 21 Year
  Sex: Female

DRUGS (5)
  1. PREDNISOLONE ACETATE [Suspect]
     Dosage: 8x/day OS
     Route: 047
  2. TIMOLOL [Suspect]
     Indication: GLAUCOMA
     Dosage: os
     Route: 047
  3. ATROPINE [Suspect]
     Dosage: OS
     Route: 047
  4. MANNITOL [Concomitant]
  5. ACETAZOLAMIDE [Concomitant]

REACTIONS (2)
  - Intraocular pressure increased [None]
  - Drug ineffective [None]
